FAERS Safety Report 6938534-8 (Version None)
Quarter: 2010Q3

REPORT INFORMATION
  Report Type: 
  Country: None (occurrence: None)
  Receive Date: 20100824
  Receipt Date: 20100810
  Transmission Date: 20110219
  Serious: Yes (Other)
  Sender: FDA-Public Use
  Company Number: FR-BAYER-201031320GPV

PATIENT
  Age: 64 Year
  Sex: Male
  Weight: 76 kg

DRUGS (6)
  1. ULTRAVIST 370 [Suspect]
     Indication: ANGIOGRAM
     Dosage: TOTAL DAILY DOSE: 150 ML
     Route: 042
     Dates: start: 20100615, end: 20100615
  2. CELESTONE [Concomitant]
     Indication: PREMEDICATION
     Route: 048
     Dates: start: 20100614, end: 20100615
  3. AERIUS [Concomitant]
     Indication: PREMEDICATION
     Route: 048
     Dates: start: 20100612, end: 20100614
  4. APROVEL [Concomitant]
     Route: 048
  5. NEXIUM [Concomitant]
     Route: 048
  6. LEXOMIL [Concomitant]
     Dosage: 3/4
     Route: 048

REACTIONS (7)
  - ANGIOEDEMA [None]
  - EAR PAIN [None]
  - ERYTHEMA [None]
  - NAUSEA [None]
  - OROPHARYNGEAL DISCOMFORT [None]
  - PALPITATIONS [None]
  - RASH [None]
